FAERS Safety Report 15062028 (Version 4)
Quarter: 2019Q1

REPORT INFORMATION
  Report Type: Spontaneous
  Country: US (occurrence: US)
  Receive Date: 20180625
  Receipt Date: 20190326
  Transmission Date: 20190417
  Serious: Yes (Life-Threatening, Hospitalization)
  Sender: FDA-Public Use
  Company Number: US-ACTELION-A-NJ2018-174050

PATIENT
  Age: 54 Year
  Sex: Female

DRUGS (5)
  1. TADALAFIL. [Concomitant]
     Active Substance: TADALAFIL
     Dosage: 40 MG, QD
     Dates: start: 20190225
  2. OPSUMIT [Suspect]
     Active Substance: MACITENTAN
     Indication: PULMONARY ARTERIAL HYPERTENSION
     Dosage: 10 MG, QD
     Route: 048
     Dates: start: 20151207
  3. TORSEMIDE. [Concomitant]
     Active Substance: TORSEMIDE
     Dosage: 20 MG TABS/80 MG BID
  4. METOLAZONE. [Concomitant]
     Active Substance: METOLAZONE
     Dosage: 2.5 MG, QD
  5. UPTRAVI [Suspect]
     Active Substance: SELEXIPAG
     Indication: PULMONARY ARTERIAL HYPERTENSION
     Dosage: 1400 MCG, BID
     Route: 048
     Dates: start: 20180302

REACTIONS (9)
  - Dyspnoea [Unknown]
  - Pulmonary oedema [Recovering/Resolving]
  - Atrial fibrillation [Unknown]
  - Hypotension [Unknown]
  - Fluid overload [Unknown]
  - Right ventricular failure [Unknown]
  - Oedema peripheral [Recovering/Resolving]
  - Cardiogenic shock [Unknown]
  - Cardiac cirrhosis [Unknown]

NARRATIVE: CASE EVENT DATE: 20180527
